FAERS Safety Report 10171187 (Version 1)
Quarter: 2014Q2

REPORT INFORMATION
  Report Type: Spontaneous
  Country: GB (occurrence: None)
  Receive Date: 20140512
  Receipt Date: 20140512
  Transmission Date: 20141212
  Serious: Yes (Death)
  Sender: FDA-Public Use
  Company Number: UTC-046863

PATIENT
  Sex: 0

DRUGS (1)
  1. REMODULIN (TREPROSTINIL SODIUM) [Suspect]

REACTIONS (1)
  - Death [None]
